FAERS Safety Report 7387665-X (Version None)
Quarter: 2011Q1

REPORT INFORMATION
  Report Type: 
  Country: None (occurrence: None)
  Receive Date: 20110331
  Receipt Date: 20110317
  Transmission Date: 20110831
  Serious: Yes (Hospitalization, Other)
  Sender: FDA-Public Use
  Company Number: CA-GENENTECH-291926

PATIENT
  Sex: Female
  Weight: 70.3 kg

DRUGS (7)
  1. ATENOLOL [Concomitant]
     Indication: HEART RATE IRREGULAR
  2. CLARITHROMYCIN [Concomitant]
     Indication: PRODUCT USED FOR UNKNOWN INDICATION
     Dosage: UNK
     Dates: start: 20110111
  3. PANTOPRAZOLE [Concomitant]
     Indication: GASTROOESOPHAGEAL REFLUX DISEASE
  4. VFEND [Concomitant]
     Indication: ANTIFUNGAL PROPHYLAXIS
  5. RITUXIMAB [Suspect]
     Indication: CHRONIC LYMPHOCYTIC LEUKAEMIA
     Dosage: 660 MG, Q3W
     Route: 042
     Dates: start: 20090713
  6. CRESTOR [Concomitant]
     Indication: BLOOD CHOLESTEROL INCREASED
  7. PREDNISONE [Concomitant]
     Indication: PRODUCT USED FOR UNKNOWN INDICATION

REACTIONS (15)
  - PNEUMONIA [None]
  - PRODUCTIVE COUGH [None]
  - CHILLS [None]
  - EYE INFECTION [None]
  - PHARYNGITIS [None]
  - SINUSITIS [None]
  - THROMBOCYTOPENIA [None]
  - IMMUNODEFICIENCY [None]
  - SINUS CONGESTION [None]
  - DISEASE PROGRESSION [None]
  - OROPHARYNGEAL PAIN [None]
  - NASOPHARYNGITIS [None]
  - HYPOGAMMAGLOBULINAEMIA [None]
  - ANAEMIA [None]
  - BONE MARROW FAILURE [None]
